FAERS Safety Report 11145070 (Version 1)
Quarter: 2015Q2

REPORT INFORMATION
  Report Type: Report from Study
  Country: US (occurrence: US)
  Receive Date: 20150528
  Receipt Date: 20150528
  Transmission Date: 20150821
  Serious: Yes (Death)
  Sender: FDA-Public Use
  Company Number: US-ASTELLAS-2015US015975

PATIENT
  Age: 60 Year
  Sex: Male

DRUGS (2)
  1. ERLOTINIB [Suspect]
     Active Substance: ERLOTINIB
     Indication: LUNG NEOPLASM MALIGNANT
     Route: 048
     Dates: start: 20110328
  2. ERLOTINIB [Suspect]
     Active Substance: ERLOTINIB
     Indication: METASTASES TO NERVOUS SYSTEM

REACTIONS (4)
  - Speech disorder [Unknown]
  - Death [Fatal]
  - Syncope [Unknown]
  - Rash [Unknown]

NARRATIVE: CASE EVENT DATE: 20110523
